FAERS Safety Report 4440620-1 (Version None)
Quarter: 2004Q3

REPORT INFORMATION
  Report Type: 
  Country: None (occurrence: None)
  Receive Date: 20040831
  Receipt Date: 20040518
  Transmission Date: 20050211
  Serious: Yes (Other)
  Sender: FDA-Public Use
  Company Number: USA040567023

PATIENT
  Age: 74 Year
  Sex: Female
  Weight: 84 kg

DRUGS (7)
  1. SYMBYAX [Suspect]
     Indication: DEPRESSION
     Dates: start: 20040428, end: 20040503
  2. DIOVAN HCT [Concomitant]
  3. XANAX [Concomitant]
  4. INDERAL [Concomitant]
  5. LIPITOR [Concomitant]
  6. LEVOXYL [Concomitant]
  7. CELEXA [Concomitant]

REACTIONS (1)
  - CARDIAC FAILURE CONGESTIVE [None]
